FAERS Safety Report 13595984 (Version 1)
Quarter: 2017Q2

REPORT INFORMATION
  Report Type: Spontaneous
  Country: US (occurrence: US)
  Receive Date: 20170531
  Receipt Date: 20170531
  Transmission Date: 20170830
  Serious: No
  Sender: FDA-Public Use
  Company Number: US-JNJFOC-20170307590

PATIENT
  Age: 79 Year
  Sex: Male

DRUGS (1)
  1. TYLENOL EXTRA STRENGTH [Suspect]
     Active Substance: ACETAMINOPHEN
     Indication: PAIN
     Dosage: HALF TABLET
     Route: 048
     Dates: start: 20170305

REACTIONS (3)
  - Wrong technique in product usage process [Unknown]
  - Drug prescribing error [Unknown]
  - Off label use [Unknown]
